FAERS Safety Report 5710797-6 (Version None)
Quarter: 2008Q2

REPORT INFORMATION
  Report Type: 
  Country: None (occurrence: None)
  Receive Date: 20080417
  Receipt Date: 20080417
  Transmission Date: 20081010
  Serious: No
  Sender: FDA-Public Use
  Company Number: None

PATIENT
  Sex: Male
  Weight: 64.8644 kg

DRUGS (1)
  1. CHANTIX [Suspect]
     Indication: SMOKING CESSATION THERAPY
     Dosage: STARTER PACK 5MG ONCE BID ORAL
     Route: 048
     Dates: start: 20080124

REACTIONS (3)
  - AGITATION [None]
  - DEPRESSION [None]
  - MOOD SWINGS [None]
